FAERS Safety Report 5006152-7 (Version None)
Quarter: 2006Q1

REPORT INFORMATION
  Report Type: 
  Country: None (occurrence: None)
  Receive Date: 20060328
  Receipt Date: 20050803
  Transmission Date: 20060701
  Serious: Yes (Hospitalization)
  Sender: FDA-Public Use
  Company Number: K200501037

PATIENT
  Age: 83 Year
  Sex: Male
  Weight: 56.7 kg

DRUGS (13)
  1. ALTACE [Suspect]
     Indication: HYPERTENSION
     Dosage: SEE IMAGE
     Route: 048
     Dates: start: 20050101, end: 20050101
  2. ALTACE [Suspect]
     Indication: HYPERTENSION
     Dosage: SEE IMAGE
     Route: 048
     Dates: start: 20050521, end: 20050101
  3. ALTACE [Suspect]
     Indication: HYPERTENSION
     Dosage: SEE IMAGE
     Route: 048
     Dates: start: 20050101, end: 20050701
  4. ALTACE [Suspect]
     Indication: HYPERTENSION
     Dosage: SEE IMAGE
     Route: 048
     Dates: start: 20050701, end: 20050802
  5. TOPROL-XL [Concomitant]
  6. PROSCAR [Concomitant]
  7. PLAVIX [Concomitant]
  8. LIPITOR [Concomitant]
  9. IMDUR [Concomitant]
  10. BULGAR [Concomitant]
  11. AMIODARONE HCL [Concomitant]
  12. ALLOPURINOL [Concomitant]
  13. ACIPHEX [Concomitant]

REACTIONS (7)
  - BLOOD PRESSURE DECREASED [None]
  - CHEST PAIN [None]
  - COUGH [None]
  - DEPRESSION [None]
  - DIZZINESS [None]
  - FATIGUE [None]
  - RENAL FAILURE ACUTE [None]
